FAERS Safety Report 9337418 (Version 1)
Quarter: 2013Q2

REPORT INFORMATION
  Report Type: Spontaneous
  Country: US (occurrence: US)
  Receive Date: 20130607
  Receipt Date: 20130607
  Transmission Date: 20140414
  Serious: Yes (Death)
  Sender: FDA-Public Use
  Company Number: US-AMGEN-USASP2013039853

PATIENT
  Age: 62 Year
  Sex: Female

DRUGS (9)
  1. ENBREL [Suspect]
     Indication: PRODUCT USED FOR UNKNOWN INDICATION
     Dosage: 50 MG, QWK
     Route: 058
  2. HYDROCORT                          /00028602/ [Concomitant]
     Dosage: 5 MG, UNK
  3. LYRICA [Concomitant]
     Dosage: 75 MG, UNK
  4. METHOTREXATE [Concomitant]
     Dosage: 2.5 MG, UNK
  5. CRANBERRY                          /01512301/ [Concomitant]
     Dosage: UNK
  6. ZANAFLEX [Concomitant]
     Dosage: 2 MG, UNK
  7. LEVOTHYROXIN [Concomitant]
     Dosage: 88 MUG, UNK
  8. POTASSIUM [Concomitant]
     Dosage: 75 MG, UNK
  9. TRIAMTERENE AND HYDROCHLOROTHIAZIDE [Concomitant]
     Dosage: 37.5-25, UNK

REACTIONS (1)
  - Death [Fatal]
